FAERS Safety Report 6502456-7 (Version None)
Quarter: 2009Q4

REPORT INFORMATION
  Report Type: 
  Country: None (occurrence: None)
  Receive Date: 20091204
  Receipt Date: 20091118
  Transmission Date: 20100525
  Serious: Yes (Other)
  Sender: FDA-Public Use
  Company Number: 2009SA006004

PATIENT
  Age: 55 Year
  Sex: Female

DRUGS (11)
  1. FLUDARABINE PHOSPHATE [Suspect]
     Indication: ACUTE MYELOID LEUKAEMIA
     Dosage: 25 MILLIGRAM(S)/SQUARE METER;DAILY
     Dates: start: 20081201, end: 20081201
  2. GEMTUZUMAB OZOGAMICIN       (GEMTUZUMAB OZOGAMICIN) [Suspect]
     Indication: ACUTE MYELOID LEUKAEMIA
     Dosage: 6 MILLIGRAM(S)/SQUARE METER;DAILY;  3 MILLIGRAM(S)/SQUARE METER;DAILY
     Dates: start: 20081201, end: 20081201
  3. GEMTUZUMAB OZOGAMICIN       (GEMTUZUMAB OZOGAMICIN) [Suspect]
     Indication: ACUTE MYELOID LEUKAEMIA
     Dosage: 6 MILLIGRAM(S)/SQUARE METER;DAILY;  3 MILLIGRAM(S)/SQUARE METER;DAILY
     Dates: start: 20081201, end: 20081201
  4. MELPHALAN         (MELPHALAN) [Suspect]
     Indication: ACUTE MYELOID LEUKAEMIA
     Dosage: 40 MILLIGRAMS)/SQUARE METER;DAILY
     Dates: start: 20080101, end: 20080101
  5. ARA-C         (CYTARABTNE) [Suspect]
     Indication: MYELOID LEUKAEMIA
     Dosage: 2 GRAM(S);DAILY
     Dates: start: 20080101, end: 20080101
  6. ANTINEOPLASTIC AGENTS [Concomitant]
  7. CYCLOPHOSPHAMIDE [Concomitant]
  8. CYCLOSPORINE [Concomitant]
  9. MYCOPHENOLATE MOFETIL [Concomitant]
  10. HEPARIN [Concomitant]
  11. BUSULFAN [Concomitant]

REACTIONS (8)
  - ACUTE MYELOID LEUKAEMIA [None]
  - HYPERBILIRUBINAEMIA [None]
  - MALIGNANT NEOPLASM PROGRESSION [None]
  - NEUTROPHIL COUNT DECREASED [None]
  - PLATELET COUNT ABNORMAL [None]
  - PYREXIA [None]
  - TRANSAMINASES INCREASED [None]
  - WEIGHT INCREASED [None]
